FAERS Safety Report 6756160-0 (Version None)
Quarter: 2010Q2

REPORT INFORMATION
  Report Type: 
  Country: None (occurrence: None)
  Receive Date: 20100603
  Receipt Date: 20100603
  Transmission Date: 20101027
  Serious: Yes (Hospitalization)
  Sender: FDA-Public Use
  Company Number: None

PATIENT
  Age: 73 Year
  Sex: Male
  Weight: 57.6068 kg

DRUGS (2)
  1. TARCEVA [Suspect]
  2. AVASTIN [Suspect]

REACTIONS (2)
  - DYSPNOEA [None]
  - HYPOXIA [None]
